FAERS Safety Report 4297804-5 (Version None)
Quarter: 2004Q1

REPORT INFORMATION
  Report Type: 
  Country: None (occurrence: None)
  Receive Date: 20040126
  Receipt Date: 20031104
  Transmission Date: 20041129
  Serious: No
  Sender: FDA-Public Use
  Company Number: USA031151639

PATIENT
  Age: 10 Year
  Sex: Male
  Weight: 27 kg

DRUGS (1)
  1. STRATTERA [Suspect]
     Indication: ATTENTION DEFICIT/HYPERACTIVITY DISORDER
     Dosage: 60 MG/AT BEDTIME
     Dates: start: 20030501

REACTIONS (8)
  - ABNORMAL BEHAVIOUR [None]
  - DECREASED APPETITE [None]
  - DRUG INTERACTION [None]
  - FATIGUE [None]
  - INSOMNIA [None]
  - IRRITABILITY [None]
  - MOOD SWINGS [None]
  - PRESCRIBED OVERDOSE [None]
